FAERS Safety Report 21954798 (Version 2)
Quarter: 2023Q1

REPORT INFORMATION
  Report Type: Spontaneous
  Country: NL (occurrence: NL)
  Receive Date: 20230205
  Receipt Date: 20230227
  Transmission Date: 20230417
  Serious: Yes (Other)
  Sender: FDA-Public Use
  Company Number: NL-ETHYPHARM-2023000138

PATIENT
  Age: 72 Year
  Sex: Female

DRUGS (3)
  1. CLINDAMYCIN [Suspect]
     Active Substance: CLINDAMYCIN
     Indication: Peritonitis bacterial
     Dosage: 600 MG, TID
     Route: 065
  2. CIPROFLOXACIN [Suspect]
     Active Substance: CIPROFLOXACIN
     Indication: Peritonitis bacterial
     Dosage: 750 MG, BID
     Route: 065
  3. MEROPENEM [Concomitant]
     Active Substance: MEROPENEM
     Indication: Peritonitis bacterial
     Dosage: UNK
     Route: 065

REACTIONS (4)
  - Renal tubular necrosis [Recovered/Resolved]
  - Acute kidney injury [Recovered/Resolved]
  - Post infection glomerulonephritis [Recovered/Resolved]
  - Crystal nephropathy [Recovered/Resolved]
